FAERS Safety Report 4641662-3 (Version None)
Quarter: 2005Q2

REPORT INFORMATION
  Report Type: 
  Country: None (occurrence: None)
  Receive Date: 20050420
  Receipt Date: 20050408
  Transmission Date: 20051028
  Serious: Yes (Hospitalization)
  Sender: FDA-Public Use
  Company Number: 05P-028-0297204-00

PATIENT
  Age: 60 Year
  Sex: Female
  Weight: 58.9676 kg

DRUGS (4)
  1. MAVIK [Suspect]
     Dosage: 2 MG, 1 IN 1 D, PER ORAL
     Route: 048
     Dates: start: 20041012, end: 20050114
  2. EFFEXOR XR [Concomitant]
  3. TERBINAFINE HCL [Concomitant]
  4. RISEDRONATE SODIUM [Concomitant]

REACTIONS (6)
  - HYDROCEPHALUS [None]
  - RUPTURED CEREBRAL ANEURYSM [None]
  - SUBARACHNOID HAEMORRHAGE [None]
  - URINARY TRACT INFECTION [None]
  - VASOSPASM [None]
  - VENTRICULAR EXTRASYSTOLES [None]
